FAERS Safety Report 24054657 (Version 1)
Quarter: 2024Q3

REPORT INFORMATION
  Report Type: Spontaneous
  Country: US (occurrence: US)
  Receive Date: 20240705
  Receipt Date: 20240705
  Transmission Date: 20241016
  Serious: No
  Sender: STALLERGENES
  Company Number: US-Stallergenes SAS-2158868

PATIENT
  Age: 6 Year
  Sex: Female

DRUGS (12)
  1. ORALAIR [Suspect]
     Active Substance: ANTHOXANTHUM ODORATUM POLLEN\DACTYLIS GLOMERATA POLLEN\LOLIUM PERENNE POLLEN\PHLEUM PRATENSE POLLEN\
     Indication: Seasonal allergy
     Route: 060
     Dates: start: 20230420
  2. SINGULAIR [Concomitant]
     Active Substance: MONTELUKAST SODIUM
  3. 5-HYDROXYTRYPTOPHAN (5-HTP) [Concomitant]
  4. FISH OIL [Concomitant]
     Active Substance: FISH OIL
  5. CETIRIZINE [Concomitant]
     Active Substance: CETIRIZINE HYDROCHLORIDE
  6. GUANFACINE [Concomitant]
     Active Substance: GUANFACINE
  7. CLONIDINE [Concomitant]
     Active Substance: CLONIDINE
  8. TRAZODONE [Concomitant]
     Active Substance: TRAZODONE HYDROCHLORIDE
  9. BENADRYL [Concomitant]
     Active Substance: DIPHENHYDRAMINE HYDROCHLORIDE
  10. ZOFRAN [Concomitant]
     Active Substance: ONDANSETRON HYDROCHLORIDE
  11. IBUPROFEN [Concomitant]
     Active Substance: IBUPROFEN
  12. EPIPEN JR [Concomitant]
     Active Substance: EPINEPHRINE

REACTIONS (3)
  - Urticaria [Unknown]
  - Blood glucose increased [Unknown]
  - Fatigue [Unknown]

NARRATIVE: CASE EVENT DATE: 20240331
